FAERS Safety Report 25993947 (Version 2)
Quarter: 2025Q4

REPORT INFORMATION
  Report Type: Report from Study
  Country: US (occurrence: US)
  Receive Date: 20251104
  Receipt Date: 20251106
  Transmission Date: 20260118
  Serious: Yes (Hospitalization)
  Sender: SANOFI AVENTIS
  Company Number: US-SA-2025SA284463

PATIENT
  Age: 84 Year
  Sex: Male
  Weight: 99 kg

DRUGS (55)
  1. ISATUXIMAB-IRFC [Suspect]
     Active Substance: ISATUXIMAB-IRFC
     Indication: Plasma cell myeloma refractory
     Dosage: 1000 MG, QW
     Route: 065
     Dates: start: 20220215, end: 20220314
  2. ISATUXIMAB-IRFC [Suspect]
     Active Substance: ISATUXIMAB-IRFC
     Dosage: 1000 MG, BIW
     Route: 065
     Dates: start: 20220322, end: 20220418
  3. ISATUXIMAB-IRFC [Suspect]
     Active Substance: ISATUXIMAB-IRFC
     Dosage: 1000 MG, BIW
     Route: 065
     Dates: start: 20220419, end: 20220516
  4. ISATUXIMAB-IRFC [Suspect]
     Active Substance: ISATUXIMAB-IRFC
     Dosage: 1000 MG, BIW
     Route: 065
     Dates: start: 20220517, end: 20220613
  5. ISATUXIMAB-IRFC [Suspect]
     Active Substance: ISATUXIMAB-IRFC
     Dosage: 1000 MG, BIW
     Route: 065
     Dates: start: 20220614, end: 20220711
  6. ISATUXIMAB-IRFC [Suspect]
     Active Substance: ISATUXIMAB-IRFC
     Dosage: 1000 MG, BIW
     Route: 065
     Dates: start: 20220712, end: 20220725
  7. ISATUXIMAB-IRFC [Suspect]
     Active Substance: ISATUXIMAB-IRFC
     Dosage: 1000 MG, BIW
     Route: 065
     Dates: start: 20220809, end: 20220905
  8. ISATUXIMAB-IRFC [Suspect]
     Active Substance: ISATUXIMAB-IRFC
     Dosage: 1000 MG, BIW
     Route: 065
     Dates: start: 20220906, end: 20221003
  9. ISATUXIMAB-IRFC [Suspect]
     Active Substance: ISATUXIMAB-IRFC
     Dosage: 1000 MG, BIW
     Route: 065
     Dates: start: 20221004, end: 20221031
  10. ISATUXIMAB-IRFC [Suspect]
     Active Substance: ISATUXIMAB-IRFC
     Dosage: 1000 MG, BIW
     Route: 065
     Dates: start: 20221101, end: 20221128
  11. ISATUXIMAB-IRFC [Suspect]
     Active Substance: ISATUXIMAB-IRFC
     Dosage: 1000 MG, BIW
     Route: 065
     Dates: start: 20221129, end: 20230102
  12. ISATUXIMAB-IRFC [Suspect]
     Active Substance: ISATUXIMAB-IRFC
     Dosage: 1000 MG, BIW
     Route: 065
     Dates: start: 20230103, end: 20230130
  13. ISATUXIMAB-IRFC [Suspect]
     Active Substance: ISATUXIMAB-IRFC
     Dosage: 1000 MG, BIW
     Route: 065
     Dates: start: 20230131, end: 20230227
  14. ISATUXIMAB-IRFC [Suspect]
     Active Substance: ISATUXIMAB-IRFC
     Dosage: 1000 MG, BIW
     Route: 065
     Dates: start: 20230228, end: 20230318
  15. POMALIDOMIDE [Suspect]
     Active Substance: POMALIDOMIDE
     Indication: Plasma cell myeloma refractory
     Dosage: 2 MG, OTHER (ON DAYS 21 AND 28)
     Route: 065
     Dates: start: 20220215, end: 20220314
  16. POMALIDOMIDE [Suspect]
     Active Substance: POMALIDOMIDE
     Dosage: 2 MG, QOD(21/28)
     Route: 065
     Dates: start: 20220322, end: 20220418
  17. POMALIDOMIDE [Suspect]
     Active Substance: POMALIDOMIDE
     Dosage: 2 MG, QOD(21/28)
     Route: 065
     Dates: start: 20220419, end: 20220516
  18. POMALIDOMIDE [Suspect]
     Active Substance: POMALIDOMIDE
     Dosage: 2 MG, QOD(21/28)
     Route: 065
     Dates: start: 20220517, end: 20220613
  19. POMALIDOMIDE [Suspect]
     Active Substance: POMALIDOMIDE
     Dosage: 2 MG, QOD
     Route: 065
     Dates: start: 20220614, end: 20220711
  20. POMALIDOMIDE [Suspect]
     Active Substance: POMALIDOMIDE
     Dosage: 2 MG, QOD
     Route: 065
     Dates: start: 20220712, end: 20220725
  21. POMALIDOMIDE [Suspect]
     Active Substance: POMALIDOMIDE
     Dosage: 2 MG, QOD
     Route: 065
     Dates: start: 20220809, end: 20220905
  22. POMALIDOMIDE [Suspect]
     Active Substance: POMALIDOMIDE
     Dosage: 2 MG, QOD
     Route: 065
     Dates: start: 20220906, end: 20221003
  23. POMALIDOMIDE [Suspect]
     Active Substance: POMALIDOMIDE
     Dosage: 2 MG, QOD
     Route: 065
     Dates: start: 20221004, end: 20221031
  24. POMALIDOMIDE [Suspect]
     Active Substance: POMALIDOMIDE
     Dosage: 2 MG, QOD
     Route: 065
     Dates: start: 20221101, end: 20221128
  25. POMALIDOMIDE [Suspect]
     Active Substance: POMALIDOMIDE
     Dosage: 2 MG, QOD
     Route: 065
     Dates: start: 20221129, end: 20230102
  26. POMALIDOMIDE [Suspect]
     Active Substance: POMALIDOMIDE
     Dosage: 2 MG, QOD
     Route: 065
     Dates: start: 20230103, end: 20230130
  27. POMALIDOMIDE [Suspect]
     Active Substance: POMALIDOMIDE
     Dosage: 2 MG, QOD
     Route: 065
     Dates: start: 20230131, end: 20230227
  28. POMALIDOMIDE [Suspect]
     Active Substance: POMALIDOMIDE
     Dosage: 2 MG, QOD
     Route: 065
     Dates: start: 20230228, end: 20230318
  29. DEXAMETHASONE [Suspect]
     Active Substance: DEXAMETHASONE
     Indication: Plasma cell myeloma refractory
     Dosage: 4 MG, QW
     Route: 065
     Dates: start: 20220215, end: 20220314
  30. DEXAMETHASONE [Suspect]
     Active Substance: DEXAMETHASONE
     Dosage: 4 MG, BIW
     Route: 065
     Dates: start: 20220322, end: 20220418
  31. DEXAMETHASONE [Suspect]
     Active Substance: DEXAMETHASONE
     Dosage: 4 MG, BIW
     Route: 065
     Dates: start: 20220419, end: 20220516
  32. DEXAMETHASONE [Suspect]
     Active Substance: DEXAMETHASONE
     Dosage: 4 MG, BIW
     Route: 065
     Dates: start: 20220517, end: 20220613
  33. DEXAMETHASONE [Suspect]
     Active Substance: DEXAMETHASONE
     Dosage: 4 MG, BIW
     Route: 065
     Dates: start: 20220614, end: 20220711
  34. DEXAMETHASONE [Suspect]
     Active Substance: DEXAMETHASONE
     Dosage: 4 MG, BIW
     Route: 065
     Dates: start: 20220712, end: 20220725
  35. DEXAMETHASONE [Suspect]
     Active Substance: DEXAMETHASONE
     Dosage: 4 MG, BIW
     Route: 065
     Dates: start: 20220809, end: 20220905
  36. DEXAMETHASONE [Suspect]
     Active Substance: DEXAMETHASONE
     Dosage: 4 MG, BIW
     Route: 065
     Dates: start: 20220906, end: 20221003
  37. DEXAMETHASONE [Suspect]
     Active Substance: DEXAMETHASONE
     Dosage: 4 MG, BIW
     Route: 065
     Dates: start: 20221004, end: 20221031
  38. DEXAMETHASONE [Suspect]
     Active Substance: DEXAMETHASONE
     Dosage: 4 MG, BIW
     Route: 065
     Dates: start: 20221101, end: 20221128
  39. DEXAMETHASONE [Suspect]
     Active Substance: DEXAMETHASONE
     Dosage: 4 MG, BIW
     Route: 065
     Dates: start: 20221129, end: 20230102
  40. DEXAMETHASONE [Suspect]
     Active Substance: DEXAMETHASONE
     Dosage: 4 MG, BIW
     Route: 065
     Dates: start: 20230103, end: 20230130
  41. DEXAMETHASONE [Suspect]
     Active Substance: DEXAMETHASONE
     Dosage: 4 MG, BIW
     Route: 065
     Dates: start: 20230131, end: 20230227
  42. DEXAMETHASONE [Suspect]
     Active Substance: DEXAMETHASONE
     Dosage: 4 MG, BIW
     Route: 065
     Dates: start: 20230228, end: 20230318
  43. WELLBUTRIN [Concomitant]
     Active Substance: BUPROPION HYDROCHLORIDE
     Dosage: UNK
     Route: 065
     Dates: start: 20221222, end: 20230320
  44. LEXAPRO [Concomitant]
     Active Substance: ESCITALOPRAM OXALATE
     Indication: Depression
     Dosage: 20 MG
     Route: 065
     Dates: start: 20191104
  45. TYLENOL [Concomitant]
     Active Substance: ACETAMINOPHEN
     Indication: Premedication
     Dosage: UNK UNK, QCY
     Dates: start: 20220215
  46. PEPCID [Concomitant]
     Active Substance: FAMOTIDINE
     Indication: Premedication
     Dosage: UNK UNK, QCY
     Route: 042
     Dates: start: 20220215
  47. BENADRYL [Concomitant]
     Active Substance: DIPHENHYDRAMINE HYDROCHLORIDE
     Indication: Premedication
     Dosage: UNK UNK, QCY
     Dates: start: 20220215
  48. VALTREX [Concomitant]
     Active Substance: VALACYCLOVIR HYDROCHLORIDE
     Indication: Prophylaxis
     Dosage: UNK
     Dates: start: 20201130
  49. ELIQUIS [Concomitant]
     Active Substance: APIXABAN
     Indication: Prophylaxis
     Dosage: UNK
     Dates: start: 20190917
  50. DEMADEX [Concomitant]
     Active Substance: TORSEMIDE
     Indication: Hypertension
     Dosage: UNK
     Dates: start: 20200824
  51. DEMADEX [Concomitant]
     Active Substance: TORSEMIDE
     Indication: Chronic left ventricular failure
  52. DEMADEX [Concomitant]
     Active Substance: TORSEMIDE
     Indication: Cardiac failure congestive
  53. VELTASSA [Concomitant]
     Active Substance: PATIROMER
     Indication: Hyperkalaemia
     Dosage: UNK
     Dates: start: 20191122
  54. COUMADIN [Concomitant]
     Active Substance: WARFARIN SODIUM
     Indication: Cardiac valve disease
     Dosage: UNK
     Dates: start: 20200106
  55. BREO ELLIPTA [Concomitant]
     Active Substance: FLUTICASONE FUROATE\VILANTEROL TRIFENATATE
     Indication: Pleural effusion
     Dosage: UNK
     Dates: start: 20200921

REACTIONS (4)
  - Hypersensitivity [Recovered/Resolved]
  - Oedema peripheral [Recovered/Resolved]
  - Upper respiratory tract infection [Recovered/Resolved]
  - Anal incontinence [Recovered/Resolved]

NARRATIVE: CASE EVENT DATE: 20230319
